FAERS Safety Report 6154540-8 (Version None)
Quarter: 2009Q2

REPORT INFORMATION
  Report Type: 
  Country: None (occurrence: None)
  Receive Date: 20090410
  Receipt Date: 20090410
  Transmission Date: 20091009
  Serious: Yes (Other)
  Sender: FDA-Public Use
  Company Number: None

PATIENT
  Age: 33 Year
  Sex: Female
  Weight: 87.0906 kg

DRUGS (1)
  1. BACTRIM [Suspect]
     Indication: STAPHYLOCOCCAL INFECTION
     Dosage: BID PO
     Route: 048
     Dates: start: 20090327, end: 20090404

REACTIONS (5)
  - CHEST PAIN [None]
  - MOVEMENT DISORDER [None]
  - PYREXIA [None]
  - RASH ERYTHEMATOUS [None]
  - TACHYCARDIA [None]
